FAERS Safety Report 24269620 (Version 3)
Quarter: 2025Q1

REPORT INFORMATION
  Report Type: Report from Study
  Country: DE (occurrence: DE)
  Receive Date: 20240830
  Receipt Date: 20250318
  Transmission Date: 20250409
  Serious: Yes (Other)
  Sender: EMD SERONO INC
  Company Number: DE-Merck Healthcare KGaA-2024045114

PATIENT
  Age: 25 Year
  Sex: Male

DRUGS (1)
  1. MAVENCLAD [Suspect]
     Active Substance: CLADRIBINE
     Indication: Multiple sclerosis
     Dates: start: 20240805, end: 20240810

REACTIONS (2)
  - Drug eruption [Recovered/Resolved]
  - Type IV hypersensitivity reaction [Recovered/Resolved]

NARRATIVE: CASE EVENT DATE: 20240817
